FAERS Safety Report 8830824 (Version 1)
Quarter: 2012Q4

REPORT INFORMATION
  Report Type: 
  Country: US (occurrence: US)
  Receive Date: 20121008
  Receipt Date: 20121008
  Transmission Date: 20130627
  Serious: No
  Sender: FDA-Public Use
  Company Number: US-ASTRAZENECA-2012SE56198

PATIENT
  Age: 76 Year
  Sex: Female
  Weight: 77.1 kg

DRUGS (5)
  1. OMEPRAZOLE [Suspect]
     Indication: GASTROOESOPHAGEAL REFLUX DISEASE
     Route: 048
  2. VIMOVO [Suspect]
     Indication: ARTHRALGIA
     Dosage: 500 MG/20 MG
     Route: 048
  3. DIOVAN [Concomitant]
     Indication: BLOOD PRESSURE INCREASED
  4. SIMVASTATIN [Concomitant]
     Indication: BLOOD CHOLESTEROL INCREASED
  5. ANXIETY PILL [Concomitant]
     Indication: ANXIETY

REACTIONS (2)
  - Joint swelling [Unknown]
  - Arthralgia [Unknown]
